FAERS Safety Report 7281344-5 (Version None)
Quarter: 2011Q1

REPORT INFORMATION
  Report Type: 
  Country: None (occurrence: None)
  Receive Date: 20110208
  Receipt Date: 20110201
  Transmission Date: 20110831
  Serious: Yes (Hospitalization)
  Sender: FDA-Public Use
  Company Number: NL-MEDIMMUNE-MEDI-0012415

PATIENT
  Sex: Male
  Weight: 5.2 kg

DRUGS (3)
  1. ACETYLSALICYLATE CALCIUM [Concomitant]
     Dates: start: 20100101
  2. SYNAGIS [Suspect]
     Route: 030
     Dates: start: 20101111, end: 20110105
  3. SYNAGIS [Suspect]
     Route: 030
     Dates: start: 20110201, end: 20110201

REACTIONS (2)
  - SENSE OF OPPRESSION [None]
  - COUGH [None]
